FAERS Safety Report 8314489-9 (Version None)
Quarter: 2012Q2

REPORT INFORMATION
  Report Type: 
  Country: None (occurrence: None)
  Receive Date: 20120426
  Receipt Date: 20120418
  Transmission Date: 20120825
  Serious: Yes (Hospitalization, Other)
  Sender: FDA-Public Use
  Company Number: AU-ACTELION-A-CH2012-59337

PATIENT
  Sex: Female
  Weight: 47.9 kg

DRUGS (4)
  1. AUGMENTIN '125' [Concomitant]
  2. TRACLEER [Suspect]
     Indication: PULMONARY ARTERIAL HYPERTENSION
     Dosage: 125 MG, BID
     Route: 048
     Dates: start: 20060601
  3. FLOLAN [Suspect]
  4. SILDENAFIL [Concomitant]

REACTIONS (17)
  - PULMONARY HAEMORRHAGE [None]
  - LUNG INFILTRATION [None]
  - RALES [None]
  - COMPUTERISED TOMOGRAM THORAX ABNORMAL [None]
  - SEPTIC EMBOLUS [None]
  - PULMONARY ARTERIAL HYPERTENSION [None]
  - DYSPNOEA [None]
  - CONDITION AGGRAVATED [None]
  - LOWER RESPIRATORY TRACT INFECTION [None]
  - ASCITES [None]
  - SPUTUM DISCOLOURED [None]
  - COUGH [None]
  - BLOOD PRESSURE SYSTOLIC DECREASED [None]
  - EXERCISE TOLERANCE DECREASED [None]
  - RIGHT VENTRICULAR FAILURE [None]
  - CYANOSIS CENTRAL [None]
  - PYREXIA [None]
